FAERS Safety Report 13919811 (Version 1)
Quarter: 2017Q3

REPORT INFORMATION
  Report Type: Spontaneous
  Country: US (occurrence: US)
  Receive Date: 20170829
  Receipt Date: 20170829
  Transmission Date: 20171127
  Serious: Yes (Other)
  Sender: FDA-Public Use
  Company Number: None

PATIENT
  Age: 62 Year
  Sex: Female
  Weight: 72 kg

DRUGS (5)
  1. GOLYTELY [Suspect]
     Active Substance: POLYETHYLENE GLYCOL 3350\POTASSIUM CHLORIDE\SODIUM BICARBONATE\SODIUM CHLORIDE\SODIUM SULFATE ANHYDROUS
     Indication: COLONOSCOPY
     Dosage: ?          OTHER FREQUENCY:THROUGHOUT 2 DAYS;?
     Route: 048
     Dates: start: 20161001, end: 20170201
  2. TUMERIC [Concomitant]
     Active Substance: HERBALS\TURMERIC
  3. MIRALAX [Suspect]
     Active Substance: POLYETHYLENE GLYCOL 3350
     Indication: COLONOSCOPY
     Dosage: QUANTITY:1 GALLON OVER 2 DAYS;OTHER FREQUENCY:EVERY 15-20 MIN;?
     Route: 048
     Dates: start: 20161001, end: 20170201
  4. VITAMIN D [Concomitant]
     Active Substance: CHOLECALCIFEROL
  5. VITAMIN B12 [Concomitant]
     Active Substance: CYANOCOBALAMIN

REACTIONS (7)
  - Toxicity to various agents [None]
  - Skin laxity [None]
  - Gait inability [None]
  - Vomiting projectile [None]
  - Drug intolerance [None]
  - Weight decreased [None]
  - Pancreatic disorder [None]

NARRATIVE: CASE EVENT DATE: 20170801
